FAERS Safety Report 14747687 (Version 1)
Quarter: 2018Q2

REPORT INFORMATION
  Report Type: Report from Study
  Country: IN (occurrence: IN)
  Receive Date: 20180411
  Receipt Date: 20180411
  Transmission Date: 20180711
  Serious: Yes (Other)
  Sender: FDA-Public Use
  Company Number: IN-ROCHE-2071517

PATIENT
  Age: 59 Year
  Sex: Female

DRUGS (4)
  1. AVASTIN [Suspect]
     Active Substance: BEVACIZUMAB
     Indication: OVARIAN CANCER
     Route: 042
     Dates: start: 20170505, end: 20170908
  2. AVASTIN [Suspect]
     Active Substance: BEVACIZUMAB
     Route: 042
     Dates: start: 20171020
  3. AVASTIN [Suspect]
     Active Substance: BEVACIZUMAB
     Route: 042
     Dates: start: 20170922
  4. CANMAB [Concomitant]
     Active Substance: TRASTUZUMAB

REACTIONS (3)
  - Full blood count abnormal [Unknown]
  - White blood cell count decreased [Unknown]
  - Haemorrhage [Unknown]
